FAERS Safety Report 24067066 (Version 2)
Quarter: 2024Q3

REPORT INFORMATION
  Report Type: Spontaneous
  Country: BE (occurrence: BE)
  Receive Date: 20240709
  Receipt Date: 20240717
  Transmission Date: 20241016
  Serious: Yes (Other)
  Sender: ROCHE
  Company Number: BE-ROCHE-10000013177

PATIENT
  Age: 26 Year
  Sex: Male

DRUGS (1)
  1. OCRELIZUMAB [Suspect]
     Active Substance: OCRELIZUMAB
     Indication: Multiple sclerosis
     Route: 065

REACTIONS (5)
  - Osteomyelitis acute [Recovered/Resolved]
  - Urinary tract infection [Unknown]
  - Candida infection [Unknown]
  - Urethral abscess [Unknown]
  - Ureaplasma infection [Unknown]
